FAERS Safety Report 8116571-8 (Version None)
Quarter: 2012Q1

REPORT INFORMATION
  Report Type: 
  Country: None (occurrence: None)
  Receive Date: 20120206
  Receipt Date: 20120127
  Transmission Date: 20120608
  Serious: Yes (Hospitalization)
  Sender: FDA-Public Use
  Company Number: US-CELGENEUS-163-21880-12012897

PATIENT
  Sex: Male

DRUGS (7)
  1. ASPIRIN [Concomitant]
     Route: 065
  2. REVLIMID [Suspect]
     Dosage: 25 MILLIGRAM
     Route: 048
     Dates: start: 20110902
  3. DIAZEPAM [Concomitant]
     Route: 065
  4. DIPHENHYDRAMINE HCL [Concomitant]
     Route: 065
  5. MELATONIN [Concomitant]
     Route: 065
  6. DEXAMETHASONE [Concomitant]
     Route: 065
  7. VALERIAN ROOT [Concomitant]
     Route: 065

REACTIONS (3)
  - RENAL FAILURE [None]
  - HYPERCALCAEMIA [None]
  - MULTIPLE MYELOMA [None]
